FAERS Safety Report 7700252-6 (Version None)
Quarter: 2011Q3

REPORT INFORMATION
  Report Type: 
  Country: None (occurrence: None)
  Receive Date: 20110816
  Receipt Date: 20110728
  Transmission Date: 20111222
  Serious: Yes (Hospitalization, Other)
  Sender: FDA-Public Use
  Company Number: JPI-P-016032

PATIENT
  Age: 51 Year
  Sex: Female
  Weight: 126.5536 kg

DRUGS (19)
  1. VENLAFAXINE HYDROCHLORIDE [Concomitant]
  2. BISACODYL [Concomitant]
  3. CLONAZEPAM [Suspect]
     Indication: PRODUCT USED FOR UNKNOWN INDICATION
  4. GABAPENTIN [Suspect]
     Indication: PRODUCT USED FOR UNKNOWN INDICATION
  5. VERAPAMIL [Concomitant]
  6. FISH OIL [Concomitant]
  7. XYREM [Suspect]
     Indication: FIBROMYALGIA
     Dosage: SEE IMAGE
     Route: 048
     Dates: start: 20110405, end: 20110706
  8. XYREM [Suspect]
     Indication: SLEEP APNOEA SYNDROME
     Dosage: SEE IMAGE
     Route: 048
     Dates: start: 20110405, end: 20110706
  9. XYREM [Suspect]
     Indication: INSOMNIA
     Dosage: SEE IMAGE
     Route: 048
     Dates: start: 20110405, end: 20110706
  10. XYREM [Suspect]
     Indication: FIBROMYALGIA
     Dosage: SEE IMAGE
     Route: 048
     Dates: start: 20110707
  11. XYREM [Suspect]
     Indication: SLEEP APNOEA SYNDROME
     Dosage: SEE IMAGE
     Route: 048
     Dates: start: 20110707
  12. XYREM [Suspect]
     Indication: INSOMNIA
     Dosage: SEE IMAGE
     Route: 048
     Dates: start: 20110707
  13. XYREM [Suspect]
     Indication: FIBROMYALGIA
     Dosage: SEE IMAGE
     Route: 048
     Dates: start: 20100610
  14. XYREM [Suspect]
     Indication: SLEEP APNOEA SYNDROME
     Dosage: SEE IMAGE
     Route: 048
     Dates: start: 20100610
  15. XYREM [Suspect]
     Indication: INSOMNIA
     Dosage: SEE IMAGE
     Route: 048
     Dates: start: 20100610
  16. LEVETIRACETAM [Suspect]
     Indication: PRODUCT USED FOR UNKNOWN INDICATION
  17. COENZYME Q10 [Concomitant]
  18. CELECOXIB [Concomitant]
  19. AMPHETAMINE, DEXTROAMPETAMINE MIXED SALTS [Concomitant]

REACTIONS (8)
  - FEELING ABNORMAL [None]
  - WEIGHT DECREASED [None]
  - GLUCOSE TOLERANCE IMPAIRED [None]
  - HYPOPHAGIA [None]
  - DECREASED APPETITE [None]
  - BLOOD HOMOCYSTEINE INCREASED [None]
  - CHOLELITHIASIS [None]
  - FATIGUE [None]
